FAERS Safety Report 16268328 (Version 1)
Quarter: 2019Q2

REPORT INFORMATION
  Report Type: Spontaneous
  Country: US (occurrence: US)
  Receive Date: 20190503
  Receipt Date: 20190503
  Transmission Date: 20190711
  Serious: No
  Sender: FDA-Public Use
  Company Number: US-TEVA-2019-US-1045889

PATIENT
  Sex: Female

DRUGS (1)
  1. CLONAZEPAM ACTAVIS [Suspect]
     Active Substance: CLONAZEPAM
     Route: 065

REACTIONS (9)
  - Product substitution issue [Unknown]
  - Feeling abnormal [Unknown]
  - Radiculopathy [Unknown]
  - Dizziness [Unknown]
  - Rash [Unknown]
  - Depression [Unknown]
  - Drug ineffective [Unknown]
  - Headache [Unknown]
  - Panic attack [Unknown]
